FAERS Safety Report 9651050 (Version 1)
Quarter: 2013Q4

REPORT INFORMATION
  Report Type: Spontaneous
  Country: US (occurrence: US)
  Receive Date: 20131029
  Receipt Date: 20131029
  Transmission Date: 20140711
  Serious: Yes (Hospitalization)
  Sender: FDA-Public Use
  Company Number: US-PFIZER INC-2013306158

PATIENT
  Age: 23 Year
  Sex: Female

DRUGS (3)
  1. FOSPHENYTOIN SODIUM [Suspect]
     Indication: STATUS EPILEPTICUS
     Dosage: 1000 MG, Q8H
     Route: 042
  2. FOSPHENYTOIN SODIUM [Suspect]
     Dosage: 800 MG, Q12H
     Route: 042
  3. PHENOBARBITAL [Concomitant]
     Indication: STATUS EPILEPTICUS
     Dosage: 30 MG, Q8H
     Route: 042

REACTIONS (6)
  - Toxicity to various agents [Unknown]
  - Drug level above therapeutic [Unknown]
  - Coma [Not Recovered/Not Resolved]
  - Unresponsive to stimuli [Not Recovered/Not Resolved]
  - Hyporeflexia [Not Recovered/Not Resolved]
  - Hypotonia [Not Recovered/Not Resolved]
